FAERS Safety Report 12424132 (Version 1)
Quarter: 2016Q2

REPORT INFORMATION
  Report Type: Spontaneous
  Country: US (occurrence: None)
  Receive Date: 20160531
  Receipt Date: 20160531
  Transmission Date: 20160815
  Serious: Yes (Death, Life-Threatening, Hospitalization, Other)
  Sender: FDA-Public Use
  Company Number: None

PATIENT
  Age: 14 Year
  Sex: Male
  Weight: 66 kg

DRUGS (6)
  1. FOSPHENYTOIN [Concomitant]
     Active Substance: FOSPHENYTOIN\FOSPHENYTOIN SODIUM
  2. ACYCLOVIR. [Concomitant]
     Active Substance: ACYCLOVIR
  3. PEGASPARGASE [Suspect]
     Active Substance: PEGASPARGASE
     Indication: ACUTE LYMPHOCYTIC LEUKAEMIA
     Dates: start: 20151119, end: 20151128
  4. VANCO [Concomitant]
     Active Substance: VANCOMYCIN
  5. KEPPRA [Concomitant]
     Active Substance: LEVETIRACETAM
  6. CEFTRIAXONE. [Concomitant]
     Active Substance: CEFTRIAXONE

REACTIONS (4)
  - Brain herniation [None]
  - Haemodialysis [None]
  - Hyperammonaemia [None]
  - Brain oedema [None]

NARRATIVE: CASE EVENT DATE: 20151126
